FAERS Safety Report 18501739 (Version 2)
Quarter: 2021Q1

REPORT INFORMATION
  Report Type: Report from Study
  Country: US (occurrence: US)
  Receive Date: 20201113
  Receipt Date: 20210226
  Transmission Date: 20210419
  Serious: Yes (Hospitalization, Other)
  Sender: FDA-Public Use
  Company Number: US-MALLINCKRODT-T202004373

PATIENT
  Sex: Female

DRUGS (2)
  1. REPOSITORY CORTICOTROPIN INJECTION [Suspect]
     Active Substance: CORTICOTROPIN
     Indication: FOCAL SEGMENTAL GLOMERULOSCLEROSIS
  2. REPOSITORY CORTICOTROPIN INJECTION [Suspect]
     Active Substance: CORTICOTROPIN
     Indication: NEPHROTIC SYNDROME
     Dosage: 80 UNITS, TWICE PER WEEK
     Route: 058
     Dates: start: 20200819

REACTIONS (5)
  - Peritonitis [Unknown]
  - Dialysis device insertion [Unknown]
  - Peritoneal dialysis complication [Unknown]
  - Urinary tract infection [Unknown]
  - Renal disorder [Unknown]

NARRATIVE: CASE EVENT DATE: 2020
